FAERS Safety Report 4282839-9 (Version None)
Quarter: 2004Q1

REPORT INFORMATION
  Report Type: 
  Country: None (occurrence: None)
  Receive Date: 20040130
  Receipt Date: 20030528
  Transmission Date: 20041129
  Serious: No
  Sender: FDA-Public Use
  Company Number: US-BRISTOL-MYERS SQUIBB COMPANY-12287124

PATIENT
  Age: 67 Year
  Sex: Female
  Weight: 68 kg

DRUGS (7)
  1. SERZONE [Suspect]
     Indication: DEPRESSION
     Dosage: D/C SERZONE ON 20-MAY-03,RESTARTED IN AM OVER NEXT FEW DAYS, THEN RESTARTED 150MG BID ON 27-MAY-03
     Route: 048
  2. LEXAPRO [Suspect]
     Dates: start: 20030521, end: 20030527
  3. CELEBREX [Concomitant]
  4. EVISTA [Concomitant]
  5. RANITIDINE HCL TABS [Concomitant]
  6. MULTI-VITAMIN [Concomitant]
  7. CALCIUM SUPPLEMENT [Concomitant]

REACTIONS (1)
  - DRUG WITHDRAWAL SYNDROME [None]
